FAERS Safety Report 6931194-1 (Version None)
Quarter: 2010Q3

REPORT INFORMATION
  Report Type: 
  Country: None (occurrence: None)
  Receive Date: 20100813
  Receipt Date: 20100728
  Transmission Date: 20110219
  Serious: Yes (Other)
  Sender: FDA-Public Use
  Company Number: ACO_01599_2010

PATIENT
  Sex: Female
  Weight: 89.8122 kg

DRUGS (9)
  1. AMPYRA [Suspect]
     Indication: GAIT DISTURBANCE
     Dosage: (10 MG BID ORAL)
     Route: 048
     Dates: start: 20100701, end: 20100701
  2. COPAXONE [Concomitant]
  3. BACLOFEN [Concomitant]
  4. GABAPENTIN [Concomitant]
  5. ASPIRIN [Concomitant]
  6. CALTRATE WITH VITAMIN D [Concomitant]
  7. HYDROCHLOROTHIAZIDE [Concomitant]
  8. OXYBUTIN [Concomitant]
  9. MULTI-VITAMINS [Concomitant]

REACTIONS (6)
  - BALANCE DISORDER [None]
  - CONFUSIONAL STATE [None]
  - DYSPNOEA [None]
  - GAIT DISTURBANCE [None]
  - MEMORY IMPAIRMENT [None]
  - WHEEZING [None]
